FAERS Safety Report 5940536-5 (Version None)
Quarter: 2008Q4

REPORT INFORMATION
  Report Type: 
  Country: None (occurrence: None)
  Receive Date: 20081104
  Receipt Date: 20081028
  Transmission Date: 20090506
  Serious: Yes (Hospitalization, Disabling, Other)
  Sender: FDA-Public Use
  Company Number: US-MERCK-0806USA01833

PATIENT
  Age: 69 Year
  Sex: Female

DRUGS (2)
  1. FOSAMAX [Suspect]
     Indication: OSTEOPOROSIS
     Route: 048
     Dates: start: 19971121, end: 20010701
  2. FOSAMAX [Suspect]
     Route: 048
     Dates: start: 20010701, end: 20060626

REACTIONS (13)
  - ABSCESS ORAL [None]
  - BACK DISORDER [None]
  - BLADDER CANCER [None]
  - BLOOD CHOLESTEROL INCREASED [None]
  - DEPRESSION [None]
  - EAR PAIN [None]
  - GASTROINTESTINAL DISORDER [None]
  - GINGIVAL ABSCESS [None]
  - HYPERTENSION [None]
  - INSOMNIA [None]
  - OSTEOMYELITIS [None]
  - OSTEONECROSIS [None]
  - TOOTH FRACTURE [None]
